FAERS Safety Report 16772100 (Version 1)
Quarter: 2019Q3

REPORT INFORMATION
  Report Type: Spontaneous
  Country: JP (occurrence: JP)
  Receive Date: 20190904
  Receipt Date: 20190904
  Transmission Date: 20191005
  Serious: Yes (Other)
  Sender: FDA-Public Use
  Company Number: JP-EISAI MEDICAL RESEARCH-EC-2019-061376

PATIENT
  Sex: Female

DRUGS (17)
  1. TRAZODONE [Concomitant]
     Active Substance: TRAZODONE HYDROCHLORIDE
     Route: 048
  2. DULOXETINE. [Concomitant]
     Active Substance: DULOXETINE
     Route: 048
  3. LEVODOPA [Concomitant]
     Active Substance: LEVODOPA
     Route: 048
  4. LEVODOPA [Concomitant]
     Active Substance: LEVODOPA
     Route: 048
  5. LEVODOPA [Concomitant]
     Active Substance: LEVODOPA
     Route: 048
  6. ENTACAPONE. [Concomitant]
     Active Substance: ENTACAPONE
     Route: 048
  7. ENTACAPONE. [Concomitant]
     Active Substance: ENTACAPONE
     Route: 048
  8. ARICEPT [Suspect]
     Active Substance: DONEPEZIL HYDROCHLORIDE
     Route: 048
  9. MIRTAZAPINE. [Concomitant]
     Active Substance: MIRTAZAPINE
     Indication: DEPRESSIVE SYMPTOM
     Route: 048
  10. DULOXETINE. [Concomitant]
     Active Substance: DULOXETINE
     Indication: DEPRESSIVE SYMPTOM
     Route: 048
  11. LEVODOPA [Concomitant]
     Active Substance: LEVODOPA
     Route: 048
  12. ARICEPT [Suspect]
     Active Substance: DONEPEZIL HYDROCHLORIDE
     Route: 048
  13. LEVODOPA [Concomitant]
     Active Substance: LEVODOPA
     Route: 048
  14. ENTACAPONE. [Concomitant]
     Active Substance: ENTACAPONE
     Indication: PARKINSONISM
     Route: 048
  15. ARICEPT [Suspect]
     Active Substance: DONEPEZIL HYDROCHLORIDE
     Indication: DEMENTIA WITH LEWY BODIES
     Route: 048
  16. TRAZODONE [Concomitant]
     Active Substance: TRAZODONE HYDROCHLORIDE
     Indication: DEPRESSIVE SYMPTOM
     Route: 048
  17. LEVODOPA [Concomitant]
     Active Substance: LEVODOPA
     Indication: PARKINSONISM
     Route: 048

REACTIONS (1)
  - Electrocardiogram QT prolonged [Unknown]
